FAERS Safety Report 12803086 (Version 2)
Quarter: 2016Q4

REPORT INFORMATION
  Report Type: Report from Study
  Country: BR (occurrence: BR)
  Receive Date: 20161003
  Receipt Date: 20161010
  Transmission Date: 20170207
  Serious: Yes (Death, Hospitalization, Other)
  Sender: FDA-Public Use
  Company Number: PHHY2016BR079227

PATIENT
  Age: 53 Year
  Sex: Female
  Weight: 48 kg

DRUGS (1)
  1. EXJADE [Suspect]
     Active Substance: DEFERASIROX
     Indication: IRON OVERLOAD
     Dosage: 2 DF, UNK
     Route: 065

REACTIONS (12)
  - Brain neoplasm malignant [Unknown]
  - Dysstasia [Unknown]
  - Abasia [Unknown]
  - Breast cancer [Unknown]
  - Weight decreased [Unknown]
  - Death [Fatal]
  - Hypokinesia [Recovering/Resolving]
  - Bone cancer [Unknown]
  - Pain [Unknown]
  - Malaise [Unknown]
  - Seizure [Unknown]
  - Hemiplegia [Recovering/Resolving]

NARRATIVE: CASE EVENT DATE: 20160221
